FAERS Safety Report 11458172 (Version 2)
Quarter: 2015Q3

REPORT INFORMATION
  Report Type: Spontaneous
  Country: US (occurrence: US)
  Receive Date: 20150904
  Receipt Date: 20150930
  Transmission Date: 20151125
  Serious: Yes (Hospitalization)
  Sender: FDA-Public Use
  Company Number: US-BAYER-2015-413209

PATIENT
  Age: 30 Year
  Sex: Female
  Weight: 52.15 kg

DRUGS (6)
  1. MIRENA [Suspect]
     Active Substance: LEVONORGESTREL
     Indication: CONTRACEPTION
     Dosage: 20 MCG/24HR, CONT
     Route: 015
     Dates: start: 20090928, end: 20130910
  2. HYDROCODONE [Concomitant]
     Active Substance: HYDROCODONE
     Dosage: UNK
     Dates: start: 201309
  3. ANCEF [Concomitant]
     Active Substance: CEFAZOLIN SODIUM
     Dosage: 2 UNK, UNK
  4. MEDROXYPROGESTERONE ACETATE. [Concomitant]
     Active Substance: MEDROXYPROGESTERONE ACETATE
     Indication: CONTRACEPTION
     Dosage: UNK
     Dates: start: 20130724
  5. IBUPROFEN. [Concomitant]
     Active Substance: IBUPROFEN
  6. TRAMADOL. [Concomitant]
     Active Substance: TRAMADOL

REACTIONS (6)
  - Uterine perforation [None]
  - Device difficult to use [None]
  - Injury [None]
  - Procedural pain [None]
  - Device issue [None]
  - Abdominal pain [None]

NARRATIVE: CASE EVENT DATE: 20130311
